FAERS Safety Report 21755226 (Version 1)
Quarter: 2022Q4

REPORT INFORMATION
  Report Type: Spontaneous
  Country: AU (occurrence: AU)
  Receive Date: 20221220
  Receipt Date: 20221220
  Transmission Date: 20230112
  Serious: Yes (Other)
  Sender: FDA-Public Use
  Company Number: AU-PFIZER INC-PV202200123521

PATIENT

DRUGS (2)
  1. PAXLOVID [Interacting]
     Active Substance: NIRMATRELVIR\RITONAVIR
     Indication: COVID-19 treatment
     Dosage: UNK
  2. RIVAROXABAN [Interacting]
     Active Substance: RIVAROXABAN
     Dosage: UNK

REACTIONS (2)
  - Drug interaction [Unknown]
  - Haemorrhage [Recovered/Resolved]
